FAERS Safety Report 23414445 (Version 2)
Quarter: 2024Q1

REPORT INFORMATION
  Report Type: Spontaneous
  Country: US (occurrence: US)
  Receive Date: 20240118
  Receipt Date: 20240216
  Transmission Date: 20240410
  Serious: No
  Sender: FDA-Public Use
  Company Number: US-BRISTOL-MYERS SQUIBB COMPANY-2024-008964

PATIENT
  Age: 71 Year
  Sex: Male

DRUGS (2)
  1. ORENCIA [Suspect]
     Active Substance: ABATACEPT
     Indication: Rheumatoid arthritis
     Route: 058
     Dates: start: 201701
  2. ORENCIA [Suspect]
     Active Substance: ABATACEPT
     Dates: start: 202312

REACTIONS (3)
  - Joint swelling [Unknown]
  - Arthralgia [Unknown]
  - Product distribution issue [Unknown]

NARRATIVE: CASE EVENT DATE: 20231201
